FAERS Safety Report 4493553-9 (Version None)
Quarter: 2004Q4

REPORT INFORMATION
  Report Type: 
  Country: None (occurrence: None)
  Receive Date: 20041103
  Receipt Date: 20041103
  Transmission Date: 20050328
  Serious: Yes (Hospitalization)
  Sender: FDA-Public Use
  Company Number: None

PATIENT
  Age: 60 Year
  Sex: Male
  Weight: 68.1 kg

DRUGS (2)
  1. ASPIRIN [Suspect]
     Indication: FEELING ABNORMAL
     Dosage: 325MG 8 TABS/DAY ORAL
     Route: 048
     Dates: start: 20040615, end: 20040622
  2. ASPIRIN [Suspect]
     Indication: RESPIRATORY DISORDER
     Dosage: 325MG 8 TABS/DAY ORAL
     Route: 048
     Dates: start: 20040615, end: 20040622

REACTIONS (2)
  - GASTROINTESTINAL HAEMORRHAGE [None]
  - GASTROINTESTINAL ULCER [None]
